FAERS Safety Report 7813242-X (Version None)
Quarter: 2011Q4

REPORT INFORMATION
  Report Type: 
  Country: None (occurrence: None)
  Receive Date: 20111013
  Receipt Date: 20111011
  Transmission Date: 20120403
  Serious: Yes (Hospitalization, Disabling)
  Sender: FDA-Public Use
  Company Number: US-MERCK-1107USA02158

PATIENT
  Age: 42 Year
  Sex: Female

DRUGS (20)
  1. FOSAMAX [Suspect]
     Indication: OSTEOPOROSIS
     Route: 048
     Dates: start: 19950101, end: 20080101
  2. CALTRATE + D [Concomitant]
     Indication: OSTEOPENIA
     Dosage: TO PRESENT
     Route: 065
     Dates: start: 19940101
  3. ALENDRONATE SODIUM/CHOLECALCIFEROL [Suspect]
     Route: 065
  4. FOSAMAX [Suspect]
     Indication: OSTEOPENIA
     Route: 048
     Dates: start: 19950101, end: 20080101
  5. VITAMIN B (UNSPECIFIED) [Concomitant]
     Route: 065
  6. CALTRATE + D [Concomitant]
     Indication: OSTEOPOROSIS
     Dosage: TO PRESENT
     Route: 065
     Dates: start: 19940101
  7. COUMADIN [Concomitant]
     Dosage: TO PRESENT
     Route: 065
     Dates: start: 19920101
  8. FOSAMAX [Suspect]
     Route: 048
     Dates: start: 20110829
  9. FOSAMAX [Suspect]
     Dosage: TO PRESENT
     Route: 048
     Dates: start: 20080201
  10. VITAMIN D (UNSPECIFIED) [Concomitant]
     Route: 065
  11. CALCIUM (UNSPECIFIED) AND VITAMIN D (UNSPECIFIED) [Concomitant]
     Route: 065
  12. ZYRTEC [Concomitant]
     Indication: HYPERSENSITIVITY
     Route: 065
     Dates: start: 19930101, end: 20060101
  13. CORTICOSTEROIDS (UNSPECIFIED) [Concomitant]
     Route: 065
     Dates: start: 19800101, end: 20040101
  14. ASCORBIC ACID [Concomitant]
     Route: 065
  15. PATANOL [Concomitant]
     Indication: HYPERSENSITIVITY
     Route: 047
     Dates: start: 20050101, end: 20070101
  16. ASPIRIN [Concomitant]
     Indication: MIGRAINE
     Dosage: TO PRESENT
     Route: 065
     Dates: start: 19920101
  17. VITAMIN E [Concomitant]
     Route: 065
  18. PATADAY [Concomitant]
     Dosage: TO PRESENT
     Route: 047
     Dates: start: 20070101
  19. FOSAMAX [Suspect]
     Dosage: TO PRESENT
     Route: 048
     Dates: start: 20080201
  20. FOSAMAX [Suspect]
     Route: 048
     Dates: start: 20110829

REACTIONS (20)
  - DEPRESSION [None]
  - DYSPEPSIA [None]
  - ADVERSE EVENT [None]
  - GASTRITIS [None]
  - ASTHMA [None]
  - WRIST FRACTURE [None]
  - RIB FRACTURE [None]
  - SINUS DISORDER [None]
  - BLADDER DISORDER [None]
  - VOCAL CORD DISORDER [None]
  - ANKLE FRACTURE [None]
  - SECRETION DISCHARGE [None]
  - TREMOR [None]
  - HOT FLUSH [None]
  - BONE DISORDER [None]
  - LOSS OF CONSCIOUSNESS [None]
  - TOOTH DISORDER [None]
  - ANXIETY [None]
  - MENTAL DISORDER [None]
  - FEMORAL NECK FRACTURE [None]
